FAERS Safety Report 13531923 (Version 1)
Quarter: 2017Q2

REPORT INFORMATION
  Report Type: Spontaneous
  Country: FR (occurrence: FR)
  Receive Date: 20170510
  Receipt Date: 20170510
  Transmission Date: 20170830
  Serious: Yes (Hospitalization)
  Sender: FDA-Public Use
  Company Number: FR-ROCHE-1923451

PATIENT
  Age: 85 Year
  Sex: Female
  Weight: 52 kg

DRUGS (4)
  1. UVEDOSE [Concomitant]
     Active Substance: CHOLECALCIFEROL
     Indication: HYPERCALCAEMIA
     Route: 065
     Dates: start: 20140415
  2. UVEDOSE [Concomitant]
     Active Substance: CHOLECALCIFEROL
     Indication: OSTEOPOROSIS
  3. BONVIVA [Suspect]
     Active Substance: IBANDRONATE SODIUM
     Indication: HYPERCALCAEMIA
     Dosage: STARTED FOR 6 MONTHS APPROXIMATELY
     Route: 048
     Dates: start: 20160315, end: 20170415
  4. BONVIVA [Suspect]
     Active Substance: IBANDRONATE SODIUM
     Indication: OSTEOPOROSIS

REACTIONS (6)
  - Dehydration [Not Recovered/Not Resolved]
  - Intentional product misuse [Unknown]
  - Cheilitis [Not Recovered/Not Resolved]
  - Drug administration error [Unknown]
  - Hypophagia [Not Recovered/Not Resolved]
  - Tongue erythema [Not Recovered/Not Resolved]

NARRATIVE: CASE EVENT DATE: 20170415
